FAERS Safety Report 15772771 (Version 1)
Quarter: 2018Q4

REPORT INFORMATION
  Report Type: Spontaneous
  Country: TR (occurrence: TR)
  Receive Date: 20181228
  Receipt Date: 20181228
  Transmission Date: 20190205
  Serious: Yes (Hospitalization, Other)
  Sender: FDA-Public Use
  Company Number: TR-ASTRAZENECA-2018SE62918

PATIENT
  Age: 40 Year
  Sex: Female

DRUGS (3)
  1. LANSOR [Concomitant]
     Active Substance: LANSOPRAZOLE
     Dosage: ONCE A DAY, SINCE 20 YEARS.
     Route: 048
  2. BYETTA [Suspect]
     Active Substance: EXENATIDE
     Indication: INSULIN RESISTANCE
     Route: 058
  3. BYETTA [Suspect]
     Active Substance: EXENATIDE
     Indication: INSULIN RESISTANCE
     Route: 058

REACTIONS (13)
  - Syncope [Recovered/Resolved]
  - Tremor [Recovered/Resolved]
  - Dizziness [Recovered/Resolved]
  - Feeling abnormal [Recovered/Resolved]
  - Influenza [Unknown]
  - Hyperhidrosis [Recovered/Resolved]
  - Nausea [Recovered/Resolved]
  - Immunodeficiency [Unknown]
  - Headache [Unknown]
  - Hypophagia [Recovered/Resolved]
  - Blood glucose decreased [Unknown]
  - Hypertension [Unknown]
  - Drug hypersensitivity [Unknown]
